FAERS Safety Report 6707442-X (Version None)
Quarter: 2010Q2

REPORT INFORMATION
  Report Type: 
  Country: None (occurrence: None)
  Receive Date: 20100503
  Receipt Date: 20091218
  Transmission Date: 20101027
  Serious: No
  Sender: FDA-Public Use
  Company Number: US-ASTRAZENECA-2009SE13690

PATIENT
  Age: 84 Year
  Sex: Male
  Weight: 68 kg

DRUGS (6)
  1. NEXIUM [Suspect]
     Indication: GASTROOESOPHAGEAL REFLUX DISEASE
     Route: 048
     Dates: start: 20040101, end: 20090901
  2. NEXIUM [Suspect]
     Route: 048
     Dates: start: 20090901, end: 20090901
  3. NEXIUM [Suspect]
     Route: 048
     Dates: start: 20090901
  4. ASPIRIN [Concomitant]
  5. PPI [Concomitant]
  6. CENTRUM VITAMIN [Concomitant]

REACTIONS (4)
  - CHEST PAIN [None]
  - CONTUSION [None]
  - COUGH [None]
  - DRUG INEFFECTIVE [None]
